FAERS Safety Report 25342063 (Version 1)
Quarter: 2025Q2

REPORT INFORMATION
  Report Type: Spontaneous
  Country: GR (occurrence: GR)
  Receive Date: 20250521
  Receipt Date: 20250521
  Transmission Date: 20250717
  Serious: Yes (Other)
  Sender: NORDIC PHARMA
  Company Number: GR-PFIZER INC-PV202500052273

PATIENT
  Age: 37 Year
  Sex: Female

DRUGS (2)
  1. METHOTREXATE SODIUM [Suspect]
     Active Substance: METHOTREXATE SODIUM
     Indication: Peripheral spondyloarthritis
     Dosage: 15 MG, WEEKLY
  2. ADALIMUMAB [Concomitant]
     Active Substance: ADALIMUMAB
     Indication: Peripheral spondyloarthritis

REACTIONS (4)
  - Coeliac disease [Unknown]
  - Product use in unapproved indication [Unknown]
  - Iron deficiency anaemia [Unknown]
  - Weight decreased [Unknown]
